FAERS Safety Report 10895682 (Version 1)
Quarter: 2015Q1

REPORT INFORMATION
  Report Type: Spontaneous
  Country: US (occurrence: US)
  Receive Date: 20150307
  Receipt Date: 20150307
  Transmission Date: 20150721
  Serious: No
  Sender: FDA-Public Use
  Company Number: US-ASTRAZENECA-2015SE18145

PATIENT
  Sex: Female

DRUGS (2)
  1. SEROQUEL [Suspect]
     Active Substance: QUETIAPINE FUMARATE
     Indication: ANXIETY
     Route: 048
  2. SEROQUEL [Suspect]
     Active Substance: QUETIAPINE FUMARATE
     Indication: INSOMNIA
     Route: 048

REACTIONS (7)
  - Weight increased [Recovering/Resolving]
  - Pyrexia [Recovered/Resolved]
  - Product use issue [Unknown]
  - Activities of daily living impaired [Recovering/Resolving]
  - Mental disorder [Unknown]
  - Increased appetite [Unknown]
  - Skin striae [Unknown]
